FAERS Safety Report 5149706-X (Version None)
Quarter: 2006Q4

REPORT INFORMATION
  Report Type: 
  Country: None (occurrence: None)
  Receive Date: 20061113
  Receipt Date: 20061031
  Transmission Date: 20070319
  Serious: Yes (Hospitalization)
  Sender: FDA-Public Use
  Company Number: CN-ROCHE-469624

PATIENT
  Age: 53 Year
  Sex: Male
  Weight: 60 kg

DRUGS (3)
  1. ROFERON-A [Suspect]
     Indication: RENAL CANCER METASTATIC
     Dosage: EVERY OTHER DAY.
     Route: 030
     Dates: start: 20060515, end: 20060930
  2. ROFERON-A [Suspect]
     Route: 030
     Dates: start: 20050515, end: 20050915
  3. ROFERON-A [Suspect]
     Route: 030
     Dates: start: 20040515, end: 20040915

REACTIONS (4)
  - DEPRESSION [None]
  - FATIGUE [None]
  - MANIA [None]
  - PYREXIA [None]
